FAERS Safety Report 8758737 (Version 4)
Quarter: 2012Q4

REPORT INFORMATION
  Report Type: 
  Country: US (occurrence: US)
  Receive Date: 20120829
  Receipt Date: 20121002
  Transmission Date: 20130627
  Serious: Yes (Hospitalization, Disabling, Other)
  Sender: FDA-Public Use
  Company Number: US-009507513-1205USA00041

PATIENT

DRUGS (4)
  1. FOSAMAX [Suspect]
     Indication: OSTEOPOROSIS
     Dosage: 70 mg, qw
     Route: 048
     Dates: end: 20090601
  2. FOSAMAX [Suspect]
     Indication: OSTEOPOROSIS
     Dosage: 70 mg, qw
     Route: 048
     Dates: end: 201006
  3. CALCIUM (UNSPECIFIED) [Concomitant]
  4. VITAMIN D (UNSPECIFIED) [Concomitant]

REACTIONS (57)
  - Femur fracture [Unknown]
  - Closed fracture manipulation [Unknown]
  - None [Unknown]
  - Femur fracture [Not Recovered/Not Resolved]
  - Patella fracture [Recovered/Resolved]
  - Osteoarthritis [Unknown]
  - Breast cancer stage I [Unknown]
  - Stress fracture [Not Recovered/Not Resolved]
  - Low turnover osteopathy [Not Recovered/Not Resolved]
  - Cholecystectomy [Unknown]
  - Fistula repair [Unknown]
  - Salpingo-oophorectomy bilateral [Unknown]
  - Hernia repair [Unknown]
  - Incisional hernia repair [Unknown]
  - Chondrocalcinosis [Unknown]
  - Fall [Unknown]
  - Oesophageal dilation procedure [Not Recovered/Not Resolved]
  - Foreign body [Unknown]
  - Fracture [Unknown]
  - None [Unknown]
  - Scoliosis [Unknown]
  - Intervertebral disc degeneration [Unknown]
  - Post herpetic neuralgia [Unknown]
  - Vitamin D deficiency [Unknown]
  - Surgery [Unknown]
  - Hyperlipidaemia [Unknown]
  - None [Recovered/Resolved]
  - Weight decreased [Not Recovered/Not Resolved]
  - Cardiomegaly [Unknown]
  - Chronic obstructive pulmonary disease [Not Recovered/Not Resolved]
  - Asthma [Unknown]
  - Chronic respiratory disease [Unknown]
  - Anaemia of chronic disease [Not Recovered/Not Resolved]
  - Acquired oesophageal web [Unknown]
  - Restless legs syndrome [Unknown]
  - Irritable bowel syndrome [Unknown]
  - Herpes zoster [Recovering/Resolving]
  - Pulmonary mass [Unknown]
  - Palpitations [Unknown]
  - Hysterectomy [Unknown]
  - Haemorrhagic disorder [Unknown]
  - Diverticulitis [Unknown]
  - Fistula [Unknown]
  - Colitis ulcerative [Unknown]
  - Arthritis [Unknown]
  - Gastritis [Not Recovered/Not Resolved]
  - Gastric ulcer [Unknown]
  - Dysphagia [Unknown]
  - Constipation [Unknown]
  - None [Unknown]
  - Drug ineffective [Unknown]
  - Oesophageal stenosis [Not Recovered/Not Resolved]
  - Drug hypersensitivity [Unknown]
  - None [Unknown]
  - None [Unknown]
  - None [Unknown]
  - Gastrooesophageal reflux disease [Unknown]
